FAERS Safety Report 8824673 (Version 1)
Quarter: 2012Q4

REPORT INFORMATION
  Report Type: 
  Country: US (occurrence: US)
  Receive Date: 20121004
  Receipt Date: 20121004
  Transmission Date: 20130627
  Serious: Yes (Death)
  Sender: FDA-Public Use
  Company Number: PHEH2012US019261

PATIENT
  Sex: Female
  Weight: 65.8 kg

DRUGS (11)
  1. ZOMETA [Suspect]
  2. MORPHINE [Concomitant]
     Indication: DYSPNOEA
     Dosage: 1-2 tablets every 4 hours
     Route: 048
     Dates: start: 20120820
  3. MORPHINE [Concomitant]
     Indication: PAIN
  4. DEXAMETHASONE [Concomitant]
     Dosage: 1 DF, 2 times daily
     Route: 048
     Dates: start: 20120815
  5. ONDANSETRON [Concomitant]
     Indication: NAUSEA
     Dosage: Every 8 hours as needed
     Dates: start: 20120815
  6. HYDROCODONE W/ACETAMINOPHEN [Concomitant]
     Indication: PAIN
     Dosage: 1- 2 tablets every 6 hours
     Route: 048
     Dates: start: 20120713
  7. CAPECITABINE [Concomitant]
     Dosage: 2 DF, two times daily
     Dates: start: 20120509
  8. ZOLPIDEM [Concomitant]
     Dosage: 1 DF, UNK
     Route: 048
     Dates: start: 20120406
  9. LAPATINIB [Concomitant]
     Dosage: 5 DF, daily
     Route: 048
     Dates: start: 20111109
  10. COMPAZINE [Concomitant]
     Indication: NAUSEA
     Dosage: 1 DF, every 6 hours
     Route: 048
     Dates: start: 20110920
  11. FEXOFENADINE [Concomitant]
     Dosage: 1 DF,
     Route: 048
     Dates: start: 20110727

REACTIONS (5)
  - Breast cancer metastatic [Fatal]
  - Metastases to liver [Fatal]
  - Metastases to central nervous system [Fatal]
  - Metastases to bone [Fatal]
  - Metastases to lung [Fatal]
